FAERS Safety Report 5933423-X (Version None)
Quarter: 2008Q4

REPORT INFORMATION
  Report Type: 
  Country: None (occurrence: None)
  Receive Date: 20081028
  Receipt Date: 20081024
  Transmission Date: 20090506
  Serious: Yes (Disabling)
  Sender: FDA-Public Use
  Company Number: US-GILEAD-2008-0017922

PATIENT
  Sex: Female
  Weight: 42.676 kg

DRUGS (10)
  1. LETAIRIS [Suspect]
     Indication: PULMONARY ARTERIAL HYPERTENSION
     Route: 048
     Dates: start: 20080825, end: 20080903
  2. ASPIRIN [Concomitant]
  3. CARDIZEM CD [Concomitant]
     Indication: HYPERTENSION
  4. CARDIZEM CD [Concomitant]
     Indication: PULMONARY HYPERTENSION
  5. DUONEB [Concomitant]
  6. ADVAIR DISKUS 100/50 [Concomitant]
  7. ACTONEL [Concomitant]
  8. SPIRIVA [Concomitant]
  9. TYLENOL [Concomitant]
  10. REVATIO [Concomitant]
     Indication: PULMONARY HYPERTENSION

REACTIONS (2)
  - PULMONARY HYPERTENSION [None]
  - RIGHT VENTRICULAR FAILURE [None]
